FAERS Safety Report 5265923-2 (Version None)
Quarter: 2007Q1

REPORT INFORMATION
  Report Type: 
  Country: None (occurrence: None)
  Receive Date: 20070312
  Receipt Date: 20070312
  Transmission Date: 20070707
  Serious: Yes (Other)
  Sender: FDA-Public Use
  Company Number: None

PATIENT
  Age: 21 Year
  Sex: Female
  Weight: 72.1219 kg

DRUGS (1)
  1. TRI-PREVIFEM [Suspect]
     Indication: CONTRACEPTION
     Dosage: ONCE DAILY PO
     Route: 048
     Dates: start: 20060905

REACTIONS (2)
  - ANGER [None]
  - IRRITABILITY [None]
